FAERS Safety Report 13736108 (Version 1)
Quarter: 2017Q3

REPORT INFORMATION
  Report Type: Spontaneous
  Country: FR (occurrence: FR)
  Receive Date: 20170710
  Receipt Date: 20170710
  Transmission Date: 20171127
  Serious: Yes (Other)
  Sender: FDA-Public Use
  Company Number: PHHY2014FR134256

PATIENT
  Age: 52 Year
  Sex: Female

DRUGS (1)
  1. METHYSERGIDE MALEATE [Suspect]
     Active Substance: METHYSERGIDE MALEATE
     Indication: MIGRAINE PROPHYLAXIS
     Route: 065

REACTIONS (3)
  - Peripheral arterial occlusive disease [Recovered/Resolved]
  - Peripheral artery stenosis [Recovered/Resolved]
  - Toxicity to various agents [Recovered/Resolved]
